FAERS Safety Report 8796762 (Version 3)
Quarter: 2013Q2

REPORT INFORMATION
  Report Type: Spontaneous
  Country: US (occurrence: US)
  Receive Date: 20120919
  Receipt Date: 20130603
  Transmission Date: 20140414
  Serious: No
  Sender: FDA-Public Use
  Company Number: US-ASTRAZENECA-2012SE71780

PATIENT
  Age: 80 Year
  Sex: Female
  Weight: 72.6 kg

DRUGS (12)
  1. SYMBICORT PMDI [Suspect]
     Indication: CHRONIC OBSTRUCTIVE PULMONARY DISEASE
     Dosage: 160/4.5 TWO PUFFS BID
     Route: 055
     Dates: start: 2011
  2. SYMBICORT PMDI [Suspect]
     Indication: ASTHMA
     Dosage: 160/4.5 TWO PUFFS BID
     Route: 055
     Dates: start: 2011
  3. OMEPRAZOLE [Suspect]
     Indication: GASTROOESOPHAGEAL REFLUX DISEASE
     Dosage: DAILY
     Route: 048
  4. SPIRIVA [Concomitant]
     Indication: ASTHMA
     Route: 055
  5. SPIRIVA [Concomitant]
     Indication: CHRONIC OBSTRUCTIVE PULMONARY DISEASE
     Route: 055
  6. LEVOTHYROXINE [Concomitant]
     Indication: WEIGHT INCREASED
     Route: 048
  7. ASPIRIN [Concomitant]
     Indication: TRANSIENT ISCHAEMIC ATTACK
     Route: 048
  8. TIMOLOL [Concomitant]
     Indication: GLAUCOMA
     Dosage: BID
     Dates: start: 2010
  9. ALPHAGAN [Concomitant]
     Indication: GLAUCOMA
     Dosage: TID
     Dates: start: 2010
  10. LEVOSTATIN [Concomitant]
     Indication: BLOOD CHOLESTEROL
     Route: 048
  11. ERYTHROMYCIN [Concomitant]
     Indication: BRONCHITIS
     Route: 048
     Dates: start: 20130403
  12. FLOVENT [Concomitant]

REACTIONS (5)
  - Asthma [Unknown]
  - Chronic obstructive pulmonary disease [Unknown]
  - Bronchitis [Not Recovered/Not Resolved]
  - Weight increased [Not Recovered/Not Resolved]
  - Device misuse [Unknown]
